FAERS Safety Report 6597225-6 (Version None)
Quarter: 2010Q1

REPORT INFORMATION
  Report Type: 
  Country: None (occurrence: None)
  Receive Date: 20100223
  Receipt Date: 20100211
  Transmission Date: 20100710
  Serious: Yes (Other)
  Sender: FDA-Public Use
  Company Number: US-MYLANLABS-2010S1002489

PATIENT
  Age: 69 Year
  Sex: Female
  Weight: 61.24 kg

DRUGS (4)
  1. CLONAZEPAM [Suspect]
     Indication: IRRITABLE BOWEL SYNDROME
     Route: 048
     Dates: start: 20020101, end: 20091201
  2. CLONAZEPAM [Suspect]
     Route: 048
     Dates: start: 20091201, end: 20091201
  3. CLONAZEPAM [Suspect]
     Route: 048
     Dates: start: 20091201
  4. CLONAZEPAM [Suspect]
     Route: 048

REACTIONS (5)
  - DEPENDENCE [None]
  - DRUG TOLERANCE [None]
  - MIGRAINE [None]
  - NECK PAIN [None]
  - WITHDRAWAL SYNDROME [None]
